FAERS Safety Report 7999638 (Version 11)
Quarter: 2018Q2

REPORT INFORMATION
  Report Type: Report from Study
  Country: JP (occurrence: JP)
  Receive Date: 20110621
  Receipt Date: 20180402
  Transmission Date: 20180711
  Serious: Yes (Death, Other)
  Sender: FDA-Public Use
  Company Number: JP-ROCHE-783515

PATIENT
  Age: 71 Year
  Sex: Female

DRUGS (21)
  1. BEVACIZUMAB. [Suspect]
     Active Substance: BEVACIZUMAB
     Indication: LUNG ADENOCARCINOMA
     Route: 041
     Dates: start: 20110301, end: 20110301
  2. EMEND [Concomitant]
     Active Substance: APREPITANT
     Route: 048
     Dates: start: 20110413, end: 20110413
  3. DOCETAXEL. [Concomitant]
     Active Substance: DOCETAXEL
     Indication: LUNG ADENOCARCINOMA
     Dosage: REPORTED AS DOCETAXEL HYDRATE
     Route: 041
     Dates: start: 20110301, end: 20110301
  4. EMEND [Concomitant]
     Active Substance: APREPITANT
     Route: 048
     Dates: start: 20110302, end: 20110303
  5. BEVACIZUMAB. [Suspect]
     Active Substance: BEVACIZUMAB
     Route: 041
     Dates: start: 20110413, end: 20110413
  6. BEVACIZUMAB. [Suspect]
     Active Substance: BEVACIZUMAB
     Route: 041
     Dates: start: 20110510, end: 20110510
  7. EMEND [Concomitant]
     Active Substance: APREPITANT
     Route: 048
     Dates: start: 20110324, end: 20110325
  8. CISPLATIN. [Concomitant]
     Active Substance: CISPLATIN
     Route: 041
     Dates: start: 20110510, end: 20110510
  9. DOCETAXEL. [Concomitant]
     Active Substance: DOCETAXEL
     Route: 041
     Dates: start: 20110323, end: 20110323
  10. EMEND [Concomitant]
     Active Substance: APREPITANT
     Route: 048
     Dates: start: 20110510, end: 20110510
  11. EMEND [Concomitant]
     Active Substance: APREPITANT
     Route: 048
     Dates: start: 20110511, end: 20110512
  12. D-MANNITOL [Concomitant]
     Active Substance: MANNITOL
     Dosage: DOSAGE IS UNCERTAIN.
     Route: 042
  13. CISPLATIN. [Concomitant]
     Active Substance: CISPLATIN
     Indication: LUNG ADENOCARCINOMA
     Route: 041
     Dates: start: 20110301, end: 20110301
  14. CISPLATIN. [Concomitant]
     Active Substance: CISPLATIN
     Route: 041
     Dates: start: 20110323, end: 20110323
  15. CISPLATIN. [Concomitant]
     Active Substance: CISPLATIN
     Route: 041
     Dates: start: 20110413, end: 20110413
  16. EMEND [Concomitant]
     Active Substance: APREPITANT
     Indication: PROPHYLAXIS OF NAUSEA AND VOMITING
     Route: 048
     Dates: start: 20110301, end: 20110301
  17. EMEND [Concomitant]
     Active Substance: APREPITANT
     Route: 048
     Dates: start: 20110323, end: 20110323
  18. EMEND [Concomitant]
     Active Substance: APREPITANT
     Route: 048
     Dates: start: 20110414, end: 20110415
  19. BEVACIZUMAB. [Suspect]
     Active Substance: BEVACIZUMAB
     Route: 041
     Dates: start: 20110323, end: 20110323
  20. DOCETAXEL. [Concomitant]
     Active Substance: DOCETAXEL
     Route: 041
     Dates: start: 20110413, end: 20110413
  21. DOCETAXEL. [Concomitant]
     Active Substance: DOCETAXEL
     Route: 041
     Dates: start: 20110510, end: 20110510

REACTIONS (5)
  - Cardio-respiratory arrest [Fatal]
  - Neutrophil count decreased [Recovered/Resolved]
  - Pulmonary alveolar haemorrhage [Fatal]
  - Neutrophil count decreased [Recovered/Resolved]
  - Asphyxia [Fatal]

NARRATIVE: CASE EVENT DATE: 20110308
